FAERS Safety Report 16146790 (Version 2)
Quarter: 2019Q2

REPORT INFORMATION
  Report Type: Spontaneous
  Country: DE (occurrence: DE)
  Receive Date: 20190402
  Receipt Date: 20190410
  Transmission Date: 20190711
  Serious: Yes (Other)
  Sender: FDA-Public Use
  Company Number: DE-PFIZER INC-2019136068

PATIENT
  Sex: Male

DRUGS (2)
  1. LEUCOVORINE [Concomitant]
     Active Substance: LEUCOVORIN
     Indication: CENTRAL NERVOUS SYSTEM LYMPHOMA
     Dosage: UNK
  2. METHOTREXATE SODIUM. [Suspect]
     Active Substance: METHOTREXATE SODIUM
     Indication: CENTRAL NERVOUS SYSTEM LYMPHOMA
     Dosage: HIGH-DOSE

REACTIONS (3)
  - Acute kidney injury [Recovered/Resolved]
  - Enzyme activity decreased [Recovered/Resolved]
  - Toxicity to various agents [Recovered/Resolved]
